FAERS Safety Report 24450209 (Version 2)
Quarter: 2024Q4

REPORT INFORMATION
  Report Type: Spontaneous
  Country: CA (occurrence: CA)
  Receive Date: 20241017
  Receipt Date: 20241125
  Transmission Date: 20250115
  Serious: Yes (Other)
  Sender: PFIZER
  Company Number: CA-PFIZER INC-202400277805

PATIENT
  Age: 69 Year
  Sex: Female

DRUGS (10)
  1. RUXIENCE [Suspect]
     Active Substance: RITUXIMAB-PVVR
     Indication: Neuropathy peripheral
     Dosage: 517.5 MG, WEEKLY (517.5MG FOR 4 WEEKS)
     Route: 042
     Dates: start: 20241002
  2. RUXIENCE [Suspect]
     Active Substance: RITUXIMAB-PVVR
     Dosage: 517.5 MG, WEEKLY (517.5MG FOR 4 WEEKS)
     Route: 042
     Dates: start: 20241009
  3. RUXIENCE [Suspect]
     Active Substance: RITUXIMAB-PVVR
     Dosage: 517.5 MG, WEEKLY, 1 WEEK (517.5 MG FOR 4 WEEKS)
     Route: 042
     Dates: start: 20241015
  4. RUXIENCE [Suspect]
     Active Substance: RITUXIMAB-PVVR
     Dosage: 517.5 MG, WEEKLY, 1 WEEK (517.5 MG FOR 4 WEEKS)
     Route: 042
     Dates: start: 20241015
  5. ACETAMINOPHEN [Concomitant]
     Active Substance: ACETAMINOPHEN
     Indication: Premedication
     Dosage: UNK
     Dates: start: 20241015, end: 20241015
  6. DIPHENHYDRAMINE [Concomitant]
     Active Substance: DIPHENHYDRAMINE
     Indication: Premedication
     Dosage: UNK
     Dates: start: 20241015, end: 20241015
  7. METHYLPREDNISOLONE [Concomitant]
     Active Substance: METHYLPREDNISOLONE
     Indication: Premedication
     Dosage: UNK
     Dates: start: 20241015, end: 20241015
  8. ACETAMINOPHEN\OXYCODONE HYDROCHLORIDE [Concomitant]
     Active Substance: ACETAMINOPHEN\OXYCODONE HYDROCHLORIDE
     Dosage: 1 DF, 1 TABLET STARTED IN 1995
     Dates: start: 1995
  9. OXYCODONE [Concomitant]
     Active Substance: OXYCODONE
     Dosage: 10 MG
     Dates: start: 1995
  10. ZOPICLONE [Concomitant]
     Active Substance: ZOPICLONE
     Dosage: 11.25MG
     Dates: start: 2012

REACTIONS (1)
  - White coat hypertension [Unknown]

NARRATIVE: CASE EVENT DATE: 20241015
